FAERS Safety Report 12702189 (Version 1)
Quarter: 2016Q3

REPORT INFORMATION
  Report Type: Spontaneous
  Country: US (occurrence: US)
  Receive Date: 20160831
  Receipt Date: 20160831
  Transmission Date: 20161109
  Serious: Yes (Other)
  Sender: FDA-Public Use
  Company Number: US-ALKERMES INC.-ALK-2016-002372

PATIENT

DRUGS (2)
  1. VIVITROL [Suspect]
     Active Substance: NALTREXONE
     Indication: DRUG ABUSE
     Dosage: 380 MG, QMO
     Route: 030
  2. BUPROPION. [Concomitant]
     Active Substance: BUPROPION
     Indication: DRUG ABUSE
     Dosage: 1 DF, UNK
     Route: 065

REACTIONS (2)
  - Off label use [Unknown]
  - Drug abuse [Unknown]
